FAERS Safety Report 16959129 (Version 1)
Quarter: 2019Q4

REPORT INFORMATION
  Report Type: Spontaneous
  Country: CA (occurrence: CA)
  Receive Date: 20191024
  Receipt Date: 20191024
  Transmission Date: 20200122
  Serious: Yes (Hospitalization, Other)
  Sender: FDA-Public Use
  Company Number: CA-AUROBINDO-AUR-APL-2019-069257

PATIENT
  Age: 70 Year
  Sex: Female

DRUGS (1)
  1. VALSARTAN. [Suspect]
     Active Substance: VALSARTAN
     Indication: HYPERTENSION
     Dosage: 160 MILLIGRAM, ONCE A DAY
     Route: 048

REACTIONS (5)
  - Blood pressure inadequately controlled [Recovered/Resolved]
  - Dizziness [Recovered/Resolved]
  - Drug ineffective [Recovered/Resolved]
  - Hypertension [Recovered/Resolved]
  - Product substitution issue [Recovered/Resolved]
